FAERS Safety Report 4952956-6 (Version None)
Quarter: 2006Q1

REPORT INFORMATION
  Report Type: 
  Country: None (occurrence: None)
  Receive Date: 20060324
  Receipt Date: 20060315
  Transmission Date: 20060701
  Serious: Yes (Death)
  Sender: FDA-Public Use
  Company Number: JP-BRISTOL-MYERS SQUIBB COMPANY-13321658

PATIENT
  Age: 48 Year
  Sex: Male

DRUGS (7)
  1. ENDOXAN [Suspect]
     Indication: STEM CELL TRANSPLANT
  2. ETOPOSIDE [Suspect]
     Indication: STEM CELL TRANSPLANT
  3. CISPLATIN [Suspect]
     Indication: STEM CELL TRANSPLANT
  4. ADRIACIN [Suspect]
     Indication: STEM CELL TRANSPLANT
  5. ONCOVIN [Suspect]
     Indication: STEM CELL TRANSPLANT
  6. CYTARABINE [Suspect]
     Indication: STEM CELL TRANSPLANT
  7. CYMERIN [Concomitant]

REACTIONS (1)
  - CARDIOMYOPATHY [None]
